FAERS Safety Report 7404256-2 (Version None)
Quarter: 2011Q2

REPORT INFORMATION
  Report Type: 
  Country: None (occurrence: None)
  Receive Date: 20110408
  Receipt Date: 20110330
  Transmission Date: 20111010
  Serious: Yes (Other)
  Sender: FDA-Public Use
  Company Number: PHHY2011JP08418

PATIENT
  Age: 72 Year
  Sex: Female

DRUGS (5)
  1. NEORAL [Suspect]
     Dosage: 100 MG, UNK
     Route: 048
     Dates: start: 20110212
  2. DIOVAN [Concomitant]
  3. ZYRTEC [Concomitant]
     Dosage: 10 MG, UNK
  4. NEORAL [Suspect]
     Indication: PSORIASIS
     Dosage: 100 MG, UNK
     Route: 048
     Dates: end: 20110101
  5. ALDOMET [Suspect]
     Dosage: 375 MG, UNK
     Route: 048
     Dates: start: 20081001, end: 20110117

REACTIONS (1)
  - HAEMOLYTIC ANAEMIA [None]
